FAERS Safety Report 5731251-1 (Version None)
Quarter: 2008Q2

REPORT INFORMATION
  Report Type: 
  Country: None (occurrence: None)
  Receive Date: 20080507
  Receipt Date: 20080411
  Transmission Date: 20081010
  Serious: No
  Sender: FDA-Public Use
  Company Number: US-BOEHRINGER INGELHEIM GMBH, GERMANY-2008-BP-05752BP

PATIENT
  Sex: Female

DRUGS (3)
  1. CATAPRES-TTS-1 [Suspect]
     Indication: HOT FLUSH
     Route: 061
     Dates: start: 20080301
  2. LYRICA [Concomitant]
     Indication: HOT FLUSH
  3. FOLAMIN [Concomitant]
     Indication: HOT FLUSH

REACTIONS (2)
  - PRURITUS [None]
  - RASH ERYTHEMATOUS [None]
